FAERS Safety Report 6542252-8 (Version None)
Quarter: 2010Q1

REPORT INFORMATION
  Report Type: 
  Country: None (occurrence: None)
  Receive Date: 20100119
  Receipt Date: 20100104
  Transmission Date: 20100710
  Serious: Yes (Other)
  Sender: FDA-Public Use
  Company Number: D0066094A

PATIENT
  Sex: Female

DRUGS (12)
  1. LAMOTRIGINE [Suspect]
     Indication: DEPRESSION
     Dosage: 100MG TWICE PER DAY
     Route: 048
     Dates: start: 20060301
  2. QUILONUM (LITHIUM ACETATE) [Suspect]
     Indication: DEPRESSION
     Route: 048
     Dates: start: 19910101, end: 20030909
  3. LAMICTAL [Suspect]
     Indication: DEPRESSION
     Route: 048
     Dates: start: 20030909
  4. ELMENDOS [Suspect]
     Indication: DEPRESSION
     Route: 048
  5. LAMOTRIGINE [Suspect]
     Indication: DEPRESSION
     Route: 048
  6. STANGYL [Suspect]
     Indication: SLEEP DISORDER
     Dosage: 50MG UNKNOWN
     Route: 048
     Dates: start: 20020727, end: 20030812
  7. ERGENYL CHRONO [Suspect]
     Indication: DEPRESSION
     Route: 048
     Dates: start: 20030409, end: 20030525
  8. AMITRIPTYLINE HYDROCHLORIDE [Concomitant]
     Dosage: 50MG PER DAY
     Route: 065
     Dates: start: 20030830
  9. BELOC ZOK [Concomitant]
     Dosage: 95MG PER DAY
     Route: 065
  10. JATROSOM [Concomitant]
     Indication: DEPRESSION
     Route: 065
     Dates: start: 19810101, end: 19910101
  11. FLUOXETINE [Concomitant]
     Indication: THERAPEUTIC PROCEDURE
     Route: 065
     Dates: start: 20020526
  12. XIMOVAN [Concomitant]
     Route: 065
     Dates: start: 20030101

REACTIONS (13)
  - ARRHYTHMIA [None]
  - ATRIAL FIBRILLATION [None]
  - BREAST CANCER [None]
  - DEPRESSION [None]
  - HALLUCINATION [None]
  - HEPATIC ENZYME ABNORMAL [None]
  - HEPATIC STEATOSIS [None]
  - HYPOTHYROIDISM [None]
  - LUNG NEOPLASM [None]
  - PERSONALITY CHANGE [None]
  - SLEEP DISORDER [None]
  - URINARY INCONTINENCE [None]
  - WEIGHT INCREASED [None]
